FAERS Safety Report 9566086 (Version 2)
Quarter: 2014Q3

REPORT INFORMATION
  Report Type: Spontaneous
  Country: CA (occurrence: CA)
  Receive Date: 20130930
  Receipt Date: 20140910
  Transmission Date: 20150326
  Serious: Yes (Hospitalization)
  Sender: FDA-Public Use
  Company Number: CA-009507513-1309CAN014486

PATIENT
  Age: 21 Year
  Sex: Female
  Weight: 63.6 kg

DRUGS (11)
  1. CARDIZEM CD [Concomitant]
     Active Substance: DILTIAZEM HYDROCHLORIDE
     Dosage: 120 MG, QD
     Route: 065
  2. TYLENOL [Concomitant]
     Active Substance: ACETAMINOPHEN
     Dosage: 975 MG, QID, PRN
     Route: 065
  3. LYRICA [Concomitant]
     Active Substance: PREGABALIN
     Dosage: 150 MG, TID
     Route: 065
  4. OXYCODONE [Concomitant]
     Active Substance: OXYCODONE
     Dosage: 2.5 MG, QID, PRN
     Route: 065
  5. AVENTYL [Concomitant]
     Dosage: 25 MG, HS
     Route: 065
  6. URSODIOL. [Concomitant]
     Active Substance: URSODIOL
     Dosage: 500 MG, TID
     Route: 065
  7. DURAGESIC [Concomitant]
     Active Substance: FENTANYL
     Dosage: 25 MICROGRAM, UNK
     Route: 065
  8. IBUPROFEN. [Concomitant]
     Active Substance: IBUPROFEN
     Dosage: 600 MG, QID
     Route: 065
  9. PANTOLOC [Concomitant]
     Active Substance: PANTOPRAZOLE SODIUM
     Dosage: 40 MG, UNK
     Route: 065
  10. ISENTRESS [Suspect]
     Active Substance: RALTEGRAVIR POTASSIUM
     Indication: CONGENITAL HIV INFECTION
     Dosage: 400 MG, BID
     Route: 048
     Dates: start: 201206, end: 20120821
  11. COMBIVIR [Concomitant]
     Active Substance: LAMIVUDINE\ZIDOVUDINE
     Dosage: 1 DF, BID
     Route: 065
     Dates: start: 201207

REACTIONS (1)
  - Haemolytic anaemia [Recovering/Resolving]
